FAERS Safety Report 9269831 (Version 2)
Quarter: 2013Q2

REPORT INFORMATION
  Report Type: Spontaneous
  Country: FR (occurrence: FR)
  Receive Date: 20130503
  Receipt Date: 20130515
  Transmission Date: 20140414
  Serious: Yes (Hospitalization)
  Sender: FDA-Public Use
  Company Number: FR-UCBSA-084450

PATIENT
  Age: 69 Year
  Sex: Male

DRUGS (5)
  1. NEUPRO [Suspect]
     Indication: TREMOR
     Route: 062
     Dates: start: 201207, end: 2012
  2. NEUPRO [Suspect]
     Indication: TREMOR
     Route: 062
     Dates: start: 2012, end: 2012
  3. KEPPRA [Concomitant]
  4. DEPAKINE [Concomitant]
  5. LAMICTAL [Concomitant]

REACTIONS (1)
  - Encephalopathy [Recovered/Resolved]
